FAERS Safety Report 11021515 (Version 5)
Quarter: 2016Q3

REPORT INFORMATION
  Report Type: Report from Study
  Country: US (occurrence: US)
  Receive Date: 20150413
  Receipt Date: 20160816
  Transmission Date: 20161109
  Serious: Yes (Hospitalization)
  Sender: FDA-Public Use
  Company Number: US-EISAI MEDICAL RESEARCH-EC-2015-004932

PATIENT
  Age: 70 Year
  Sex: Male
  Weight: 88.6 kg

DRUGS (21)
  1. VITAMIN D [Concomitant]
     Active Substance: CHOLECALCIFEROL
     Route: 048
     Dates: start: 20141022
  2. PRAVASTATIN. [Concomitant]
     Active Substance: PRAVASTATIN
     Route: 048
     Dates: start: 201308
  3. MULTIVITAMIN WITH MINERALS [Concomitant]
     Active Substance: MINERALS\VITAMINS
  4. AZITHROMYCIN ANHYDROUS. [Concomitant]
     Active Substance: AZITHROMYCIN ANHYDROUS
  5. ATORVASTATIN [Concomitant]
     Active Substance: ATORVASTATIN
  6. REGULAR INSULIN [Concomitant]
     Active Substance: INSULIN NOS
  7. PRESERVISION [Concomitant]
     Active Substance: MINERALS\VITAMINS
     Route: 048
     Dates: start: 2010
  8. ASPIRIN. [Concomitant]
     Active Substance: ASPIRIN
     Route: 048
     Dates: start: 201401
  9. TIKOSYN [Concomitant]
     Active Substance: DOFETILIDE
  10. LORCASERIN [Suspect]
     Active Substance: LORCASERIN HYDROCHLORIDE
     Route: 048
     Dates: start: 20150115, end: 20150311
  11. NITROSTAT [Concomitant]
     Active Substance: NITROGLYCERIN
     Route: 048
     Dates: start: 20140107
  12. BENZONATATE. [Concomitant]
     Active Substance: BENZONATATE
  13. LORCASERIN [Suspect]
     Active Substance: LORCASERIN HYDROCHLORIDE
     Indication: WEIGHT CONTROL
     Route: 048
     Dates: start: 20141021, end: 20141113
  14. GLIPIZIDE. [Concomitant]
     Active Substance: GLIPIZIDE
  15. ELIQUIS [Concomitant]
     Active Substance: APIXABAN
  16. TAMSULOSIN [Concomitant]
     Active Substance: TAMSULOSIN
     Route: 048
     Dates: start: 20130830
  17. PRESERVISION [Concomitant]
     Active Substance: MINERALS\VITAMINS
  18. METFORMIN [Concomitant]
     Active Substance: METFORMIN HYDROCHLORIDE
     Route: 048
     Dates: start: 20140515
  19. METOPROLOL. [Concomitant]
     Active Substance: METOPROLOL
     Route: 048
     Dates: start: 20140515
  20. OMEPRAZOLE. [Concomitant]
     Active Substance: OMEPRAZOLE
     Route: 048
     Dates: start: 201308
  21. VITAMIN B12 [Concomitant]
     Active Substance: CYANOCOBALAMIN
     Route: 048
     Dates: start: 201402

REACTIONS (6)
  - Transient ischaemic attack [Recovered/Resolved]
  - Acute kidney injury [Recovered/Resolved]
  - Chronic obstructive pulmonary disease [Recovered/Resolved]
  - Non-cardiac chest pain [Recovered/Resolved]
  - Microscopic polyangiitis [Not Recovered/Not Resolved]
  - Angina unstable [Recovered/Resolved]

NARRATIVE: CASE EVENT DATE: 20150312
